FAERS Safety Report 8355562-9 (Version None)
Quarter: 2012Q2

REPORT INFORMATION
  Report Type: 
  Country: None (occurrence: None)
  Receive Date: 20120513
  Receipt Date: 20120502
  Transmission Date: 20120825
  Serious: Yes (Hospitalization)
  Sender: FDA-Public Use
  Company Number: US-ELI_LILLY_AND_COMPANY-US201205001547

PATIENT
  Sex: Female

DRUGS (16)
  1. SERTRALINE HYDROCHLORIDE [Concomitant]
     Dosage: 100 MG, QD
  2. LOSARTAN POTASSIUM [Concomitant]
     Dosage: 50 MG, QD
  3. VITAMIN D [Concomitant]
     Dosage: 5000 U, QD
  4. ROSUVASTATIN [Concomitant]
     Dosage: 10 MG, QD
  5. AMITRIPTYLINE HCL [Concomitant]
     Dosage: 50 MG, PRN
  6. MUSCLE RELAXANTS [Concomitant]
  7. CALCIUM [Concomitant]
     Dosage: 600 MG, BID
  8. LORTAB [Concomitant]
     Dosage: 10 MG, EVERY 6 HRS
  9. MULTI-VITAMIN [Concomitant]
     Dosage: UNK, QD
  10. FORTEO [Suspect]
     Indication: OSTEOPOROSIS
     Dosage: 20 UG, QD
  11. IBUPROFEN [Concomitant]
     Dosage: 600 MG, TID
  12. FORTEO [Suspect]
     Dosage: 20 UG, QD
     Dates: end: 20120409
  13. ASPIRIN [Concomitant]
     Dosage: 325 MG, QD
  14. OMEPRAZOLE [Concomitant]
     Dosage: 40 MG, QD
  15. LEVOTHYROXINE SODIUM [Concomitant]
     Dosage: 0.25 MG, QD
  16. AMLODIPINE BESYLATE [Concomitant]
     Dosage: 5 MG, QD

REACTIONS (1)
  - MEDICAL DEVICE IMPLANTATION [None]
